FAERS Safety Report 8576716-2 (Version None)
Quarter: 2012Q3

REPORT INFORMATION
  Report Type: 
  Country: None (occurrence: None)
  Receive Date: 20120807
  Receipt Date: 20120802
  Transmission Date: 20120928
  Serious: Yes (Life-Threatening, Hospitalization)
  Sender: FDA-Public Use
  Company Number: JP-GLAXOSMITHKLINE-B0818524A

PATIENT
  Sex: Male

DRUGS (4)
  1. LAMICTAL [Suspect]
     Indication: BIPOLAR DISORDER
     Dosage: 12.5MG PER DAY
     Route: 048
     Dates: start: 20120528, end: 20120601
  2. TOPIRAMATE [Suspect]
     Indication: POST-TRAUMATIC STRESS DISORDER
     Dosage: 350MG PER DAY
     Route: 048
     Dates: start: 20120123, end: 20120622
  3. LAMICTAL [Suspect]
     Dosage: 25MG PER DAY
     Route: 048
     Dates: start: 20120601, end: 20120622
  4. DEPAKENE [Suspect]
     Indication: MOOD SWINGS
     Dosage: 500MG PER DAY
     Route: 048
     Dates: start: 20120123, end: 20120622

REACTIONS (6)
  - PYREXIA [None]
  - ORAL MUCOSA EROSION [None]
  - STEVENS-JOHNSON SYNDROME [None]
  - ECZEMA [None]
  - LYMPHOCYTE STIMULATION TEST POSITIVE [None]
  - LIP EROSION [None]
